FAERS Safety Report 8395252-X (Version None)
Quarter: 2012Q2

REPORT INFORMATION
  Report Type: 
  Country: None (occurrence: None)
  Receive Date: 20120530
  Receipt Date: 20120523
  Transmission Date: 20120825
  Serious: Yes (Hospitalization)
  Sender: FDA-Public Use
  Company Number: PHHY2012CA019211

PATIENT
  Sex: Male

DRUGS (2)
  1. AFINITOR [Suspect]
     Indication: NEUROENDOCRINE TUMOUR
     Dosage: 05 MG EVERY DAY
     Route: 048
     Dates: start: 20120126
  2. SANDOSTATIN LAR [Suspect]
     Indication: NEUROENDOCRINE TUMOUR
     Dosage: 20 MG, EVERY 4 WEEKS
     Route: 030

REACTIONS (7)
  - HYPOPHAGIA [None]
  - FATIGUE [None]
  - MALAISE [None]
  - DIABETES MELLITUS [None]
  - ABDOMINAL PAIN UPPER [None]
  - MOVEMENT DISORDER [None]
  - VOMITING [None]
